FAERS Safety Report 4470659-1 (Version None)
Quarter: 2004Q4

REPORT INFORMATION
  Report Type: 
  Country: None (occurrence: None)
  Receive Date: 20041006
  Receipt Date: 20041006
  Transmission Date: 20050328
  Serious: Yes (Hospitalization)
  Sender: FDA-Public Use
  Company Number: None

PATIENT
  Age: 53 Year
  Sex: Male
  Weight: 65.7 kg

DRUGS (1)
  1. PHENYTOIN [Suspect]
     Indication: CONVULSION
     Dosage: 200 MG PO BID
     Route: 048
     Dates: start: 20040601

REACTIONS (4)
  - CONFUSIONAL STATE [None]
  - CONVULSION [None]
  - FALL [None]
  - TREMOR [None]
